FAERS Safety Report 4586476-8 (Version None)
Quarter: 2005Q1

REPORT INFORMATION
  Report Type: 
  Country: None (occurrence: None)
  Receive Date: 20050218
  Receipt Date: 20041208
  Transmission Date: 20050727
  Serious: Yes (Disabling)
  Sender: FDA-Public Use
  Company Number: US-ROCHE-388625

PATIENT
  Age: 61 Year
  Sex: Female
  Weight: 76.2 kg

DRUGS (2)
  1. PEGASYS [Suspect]
     Route: 058
     Dates: start: 20030616, end: 20040107
  2. RIBAVIRIN [Suspect]
     Dosage: DOSAGE REGIMEN: 5/DAY
     Route: 048
     Dates: start: 20030616, end: 20040115

REACTIONS (1)
  - CONVULSION [None]
